FAERS Safety Report 10490558 (Version 1)
Quarter: 2014Q4

REPORT INFORMATION
  Report Type: Spontaneous
  Country: MX (occurrence: MX)
  Receive Date: 20141002
  Receipt Date: 20141002
  Transmission Date: 20150528
  Serious: Yes (Life-Threatening, Hospitalization, Other)
  Sender: FDA-Public Use
  Company Number: PHHY2014MX128982

PATIENT
  Sex: Female

DRUGS (2)
  1. TEGRETOL [Suspect]
     Active Substance: CARBAMAZEPINE
     Indication: ELECTROENCEPHALOGRAM ABNORMAL
     Dosage: 2 DF, DAILY
     Route: 048
     Dates: start: 200401, end: 200406
  2. TEGRETOL [Suspect]
     Active Substance: CARBAMAZEPINE
     Indication: OFF LABEL USE

REACTIONS (20)
  - Peripheral paralysis [Recovered/Resolved]
  - Hypokinesia [Recovered/Resolved]
  - Dysstasia [Recovered/Resolved]
  - Cerebral haemorrhage [Recovered/Resolved]
  - Hypophagia [Recovered/Resolved]
  - Dementia [Recovered/Resolved]
  - Alopecia [Recovered/Resolved]
  - Weight increased [Unknown]
  - Coma [Recovered/Resolved]
  - Seizure [Recovered/Resolved]
  - Gait disturbance [Not Recovered/Not Resolved]
  - Aphasia [Recovered/Resolved]
  - Dermatosis [Recovered/Resolved]
  - Mental disorder [Recovered/Resolved]
  - Eye disorder [Recovered/Resolved]
  - Weight decreased [Recovered/Resolved]
  - Muscular weakness [Recovered/Resolved]
  - Rash macular [Recovered/Resolved]
  - Madarosis [Recovered/Resolved]
  - Muscle contractions involuntary [Recovered/Resolved]

NARRATIVE: CASE EVENT DATE: 200403
